FAERS Safety Report 6737647-3 (Version None)
Quarter: 2010Q2

REPORT INFORMATION
  Report Type: 
  Country: None (occurrence: None)
  Receive Date: 20100521
  Receipt Date: 20100521
  Transmission Date: 20101027
  Serious: Yes (Hospitalization)
  Sender: FDA-Public Use
  Company Number: None

PATIENT
  Age: 81 Year
  Sex: Male
  Weight: 61 kg

DRUGS (9)
  1. WARFARIN SODIUM [Suspect]
     Indication: ANTICOAGULANT THERAPY
     Dosage: DAILY PO PRIOR TO ADMISSION
     Route: 048
  2. WARFARIN SODIUM [Suspect]
     Indication: THROMBOSIS PROPHYLAXIS
     Dosage: DAILY PO PRIOR TO ADMISSION
     Route: 048
  3. PRAVASTATIN [Concomitant]
  4. OMEPRAZOLE [Concomitant]
  5. ATENTOLOL [Concomitant]
  6. ASPIRIN [Concomitant]
  7. ALBUTEROL/IPRATROPIUM INHALER [Concomitant]
  8. IRON SUPPLEMENT [Concomitant]
  9. SODIUM BICARBONATE [Concomitant]

REACTIONS (6)
  - ANAEMIA [None]
  - DEVICE FAILURE [None]
  - HAEMATURIA [None]
  - INTERNATIONAL NORMALISED RATIO INCREASED [None]
  - OCCULT BLOOD POSITIVE [None]
  - RENAL FAILURE [None]
